FAERS Safety Report 8830863 (Version 2)
Quarter: 2012Q4

REPORT INFORMATION
  Report Type: 
  Country: CN (occurrence: CN)
  Receive Date: 20121008
  Receipt Date: 20121011
  Transmission Date: 20130627
  Serious: Yes (Other)
  Sender: FDA-Public Use
  Company Number: CN-BAYER-2012-101713

PATIENT
  Age: 56 Year
  Sex: Male

DRUGS (3)
  1. NIMOTOP [Suspect]
     Indication: SENILE DEMENTIA
     Dosage: 1 DF, TID
     Route: 048
     Dates: start: 20120926, end: 20120927
  2. PLAVIX [Concomitant]
     Dosage: UNK
     Dates: end: 20120926
  3. LIPITOR [Concomitant]
     Dosage: UNK

REACTIONS (5)
  - Pharyngeal haemorrhage [Recovered/Resolved]
  - Eye swelling [Recovered/Resolved]
  - Dizziness [Recovered/Resolved]
  - Back pain [Recovered/Resolved]
  - Myalgia [Recovered/Resolved]
